FAERS Safety Report 8001198-9 (Version None)
Quarter: 2011Q4

REPORT INFORMATION
  Report Type: 
  Country: None (occurrence: None)
  Receive Date: 20111220
  Receipt Date: 20111214
  Transmission Date: 20120403
  Serious: Yes (Other)
  Sender: FDA-Public Use
  Company Number: ACO_26430_2011

PATIENT
  Age: 58 Year
  Sex: Female

DRUGS (4)
  1. SERTRALINE HYDROCHLORIDE [Suspect]
     Dosage: 50 MG, QD, ORAL
     Route: 048
  2. BACLOFEN [Concomitant]
  3. AMPYRA [Suspect]
     Indication: GAIT DISTURBANCE
     Dates: start: 20110511, end: 20110606
  4. COPAXONE [Concomitant]

REACTIONS (1)
  - CONVULSION [None]
